FAERS Safety Report 5069775-5 (Version None)
Quarter: 2006Q3

REPORT INFORMATION
  Report Type: 
  Country: None (occurrence: None)
  Receive Date: 20060803
  Receipt Date: 20041203
  Transmission Date: 20061208
  Serious: Yes (Other)
  Sender: FDA-Public Use
  Company Number: GB-GLAXOSMITHKLINE-B0359748A

PATIENT
  Sex: Male

DRUGS (3)
  1. SEROXAT [Suspect]
     Indication: ANXIETY
     Dosage: 20MG PER DAY
     Route: 065
     Dates: start: 20010425
  2. ACETAMINOPHEN [Suspect]
     Route: 065
  3. ALCOHOL [Suspect]
     Route: 065

REACTIONS (6)
  - CONDITION AGGRAVATED [None]
  - DRUG WITHDRAWAL SYNDROME [None]
  - NIGHTMARE [None]
  - OVERDOSE [None]
  - PARAESTHESIA [None]
  - SUICIDE ATTEMPT [None]
